FAERS Safety Report 5463243-4 (Version None)
Quarter: 2007Q3

REPORT INFORMATION
  Report Type: 
  Country: None (occurrence: None)
  Receive Date: 20070920
  Receipt Date: 20070914
  Transmission Date: 20080115
  Serious: Yes (Other)
  Sender: FDA-Public Use
  Company Number: GB-MERCK-0708GBR00100

PATIENT
  Age: 52 Year
  Sex: Female
  Weight: 131 kg

DRUGS (9)
  1. ZOCOR [Suspect]
     Indication: BLOOD CHOLESTEROL INCREASED
     Route: 048
     Dates: start: 20070705, end: 20070719
  2. AMITRIPTYLINE HYDROCHLORIDE [Concomitant]
     Route: 065
  3. ACETAMINOPHEN AND DIHYDROCODEINE BITARTRATE [Concomitant]
     Indication: BACK PAIN
     Route: 048
     Dates: start: 20061020
  4. ESCITALOPRAM [Concomitant]
     Indication: DEPRESSION
     Route: 048
     Dates: start: 20050621
  5. GABAPENTIN [Concomitant]
     Indication: BACK PAIN
     Route: 048
     Dates: start: 20030911
  6. OMEPRAZOLE [Concomitant]
     Route: 065
  7. ALBUTEROL [Concomitant]
     Route: 065
  8. BUDESONIDE AND FORMOTEROL FUMARATE [Concomitant]
     Route: 065
  9. TRAMADOL HYDROCHLORIDE [Concomitant]
     Indication: BACK PAIN
     Route: 048
     Dates: start: 20050621

REACTIONS (4)
  - ASTHMA [None]
  - BLOOD CREATINE PHOSPHOKINASE INCREASED [None]
  - MUSCLE SPASMS [None]
  - MYALGIA [None]
